FAERS Safety Report 14139978 (Version 3)
Quarter: 2017Q4

REPORT INFORMATION
  Report Type: Spontaneous
  Country: EC (occurrence: EC)
  Receive Date: 20171030
  Receipt Date: 20171207
  Transmission Date: 20180321
  Serious: Yes (Other)
  Sender: FDA-Public Use
  Company Number: EC-ROCHE-1983051

PATIENT
  Age: 59 Year
  Sex: Female

DRUGS (1)
  1. BEVACIZUMAB. [Suspect]
     Active Substance: BEVACIZUMAB
     Indication: TRIPLE NEGATIVE BREAST CANCER
     Dosage: MOST RECENT DOSE WAS ADMINISTERED ON 28/JULY/2017
     Route: 042
     Dates: start: 20170503

REACTIONS (8)
  - Lip discolouration [Unknown]
  - Ill-defined disorder [Recovered/Resolved]
  - Metastases to lung [Unknown]
  - Anxiety [Unknown]
  - Disease recurrence [Unknown]
  - Oedema peripheral [Unknown]
  - Cardiac disorder [Unknown]
  - Epistaxis [Recovered/Resolved]
